FAERS Safety Report 5184081-6 (Version None)
Quarter: 2006Q4

REPORT INFORMATION
  Report Type: 
  Country: None (occurrence: None)
  Receive Date: 20061220
  Receipt Date: 20060208
  Transmission Date: 20070319
  Serious: No
  Sender: FDA-Public Use
  Company Number: US-GLAXOSMITHKLINE-A0592807A

PATIENT
  Age: 46 Year
  Sex: Female

DRUGS (2)
  1. NICODERM CQ [Suspect]
     Dates: start: 20060101, end: 20060206
  2. NICODERM CQ [Suspect]

REACTIONS (10)
  - APPLICATION SITE ERYTHEMA [None]
  - APPLICATION SITE HYPERAESTHESIA [None]
  - APPLICATION SITE PAIN [None]
  - APPLICATION SITE PRURITUS [None]
  - APPLICATION SITE URTICARIA [None]
  - APPLICATION SITE WARMTH [None]
  - DISTURBANCE IN ATTENTION [None]
  - INSOMNIA [None]
  - NICOTINE DEPENDENCE [None]
  - TENSION [None]
